FAERS Safety Report 22249570 (Version 2)
Quarter: 2023Q2

REPORT INFORMATION
  Report Type: Spontaneous
  Country: FR (occurrence: FR)
  Receive Date: 20230425
  Receipt Date: 20230517
  Transmission Date: 20230721
  Serious: Yes (Death)
  Sender: FDA-Public Use
  Company Number: None

PATIENT
  Age: 51 Year
  Sex: Female
  Weight: 92 kg

DRUGS (1)
  1. CARBOPLATIN [Suspect]
     Active Substance: CARBOPLATIN
     Indication: Ovarian cancer
     Dates: start: 20230314

REACTIONS (6)
  - Hypotension [Fatal]
  - Abdominal pain lower [Fatal]
  - Loss of consciousness [Fatal]
  - Malaise [Fatal]
  - Cardio-respiratory arrest [Fatal]
  - Anaphylactic shock [Fatal]

NARRATIVE: CASE EVENT DATE: 20230314
